FAERS Safety Report 5334658-X (Version None)
Quarter: 2007Q2

REPORT INFORMATION
  Report Type: 
  Country: None (occurrence: None)
  Receive Date: 20070525
  Receipt Date: 20070521
  Transmission Date: 20071010
  Serious: Yes (Other)
  Sender: FDA-Public Use
  Company Number: B0471610A

PATIENT
  Age: 67 Year
  Sex: Male

DRUGS (1)
  1. AVANDAMET [Suspect]
     Route: 048
     Dates: start: 20070201

REACTIONS (3)
  - MALAISE [None]
  - RENAL FAILURE [None]
  - VOMITING [None]
